FAERS Safety Report 11671421 (Version 1)
Quarter: 2015Q4

REPORT INFORMATION
  Report Type: Spontaneous
  Country: US (occurrence: US)
  Receive Date: 20151028
  Receipt Date: 20151028
  Transmission Date: 20160304
  Serious: No
  Sender: FDA-Public Use
  Company Number: US-ASTRAZENECA-2015SF00915

PATIENT
  Age: 29618 Day
  Sex: Male
  Weight: 70.3 kg

DRUGS (1)
  1. CRESTOR [Suspect]
     Active Substance: ROSUVASTATIN CALCIUM
     Indication: BLOOD CHOLESTEROL INCREASED
     Route: 048
     Dates: start: 20151008

REACTIONS (9)
  - Low density lipoprotein increased [Unknown]
  - Limb discomfort [Not Recovered/Not Resolved]
  - Drug intolerance [Unknown]
  - Arthritis [Unknown]
  - Pain [Not Recovered/Not Resolved]
  - Renal impairment [Not Recovered/Not Resolved]
  - High density lipoprotein decreased [Unknown]
  - Skin discolouration [Not Recovered/Not Resolved]
  - Arthralgia [Recovered/Resolved]

NARRATIVE: CASE EVENT DATE: 20151011
